FAERS Safety Report 10029164 (Version 2)
Quarter: 2014Q1

REPORT INFORMATION
  Report Type: Report from Study
  Country: AU (occurrence: AU)
  Receive Date: 20140321
  Receipt Date: 20140321
  Transmission Date: 20141002
  Serious: Yes (Death, Hospitalization)
  Sender: FDA-Public Use
  Company Number: PHHY2014AU024057

PATIENT
  Age: 62 Year
  Sex: Female

DRUGS (2)
  1. AFINITOR [Suspect]
     Indication: BREAST CANCER METASTATIC
     Dosage: 10 MG, DAY
     Route: 048
     Dates: start: 20131205, end: 20131220
  2. AROMASIN [Concomitant]
     Indication: BREAST CANCER METASTATIC

REACTIONS (2)
  - Metastases to central nervous system [Fatal]
  - General physical health deterioration [Fatal]
